FAERS Safety Report 15054072 (Version 1)
Quarter: 2018Q2

REPORT INFORMATION
  Report Type: Report from Study
  Country: US (occurrence: US)
  Receive Date: 20180622
  Receipt Date: 20180622
  Transmission Date: 20180711
  Serious: No
  Sender: FDA-Public Use
  Company Number: US-ALEXION PHARMACEUTICALS INC.-A201807249

PATIENT
  Sex: Female

DRUGS (1)
  1. STRENSIQ [Suspect]
     Active Substance: ASFOTASE ALFA
     Indication: PRODUCT USED FOR UNKNOWN INDICATION
     Dosage: UNK
     Route: 065

REACTIONS (6)
  - Neurological symptom [Unknown]
  - Head discomfort [Unknown]
  - Memory impairment [Unknown]
  - Blood alkaline phosphatase increased [Unknown]
  - Muscle strain [Unknown]
  - Tremor [Unknown]

NARRATIVE: CASE EVENT DATE: 201711
